FAERS Safety Report 7454312-8 (Version None)
Quarter: 2011Q2

REPORT INFORMATION
  Report Type: 
  Country: None (occurrence: None)
  Receive Date: 20110503
  Receipt Date: 20110323
  Transmission Date: 20111010
  Serious: Yes (Other)
  Sender: FDA-Public Use
  Company Number: US-BAYER-2010-003061

PATIENT
  Age: 26 Year
  Sex: Female
  Weight: 54.422 kg

DRUGS (4)
  1. YAZ [Suspect]
     Indication: PREMENSTRUAL SYNDROME
     Dosage: UNK
     Route: 048
     Dates: start: 20050101, end: 20080101
  2. NAPROXEN (ALEVE) [Concomitant]
  3. NSAID'S [Concomitant]
  4. ADVIL LIQUI-GELS [Concomitant]

REACTIONS (5)
  - INJURY [None]
  - CONVULSION [None]
  - PAIN [None]
  - EMOTIONAL DISTRESS [None]
  - ANXIETY [None]
